FAERS Safety Report 7307662-X (Version None)
Quarter: 2011Q1

REPORT INFORMATION
  Report Type: 
  Country: None (occurrence: None)
  Receive Date: 20110223
  Receipt Date: 20110208
  Transmission Date: 20110831
  Serious: Yes (Death)
  Sender: FDA-Public Use
  Company Number: GB-BAUSCH-2011BL000853

PATIENT
  Age: 54 Year
  Sex: Male

DRUGS (2)
  1. ATROPINE [Suspect]
     Indication: MYASTHENIA GRAVIS
     Dates: start: 20100101
  2. PYRIDOSTIGMINE BROMIDE [Suspect]
     Indication: MYASTHENIA GRAVIS
     Dates: start: 20100101

REACTIONS (3)
  - SUDDEN DEATH [None]
  - TACHYCARDIA [None]
  - TACHYPNOEA [None]
